FAERS Safety Report 5041532-5 (Version None)
Quarter: 2006Q2

REPORT INFORMATION
  Report Type: 
  Country: None (occurrence: None)
  Receive Date: 20060627
  Receipt Date: 20060612
  Transmission Date: 20061013
  Serious: No
  Sender: FDA-Public Use
  Company Number: 35162

PATIENT
  Age: 40 Year
  Sex: Male

DRUGS (6)
  1. NEVANAC [Suspect]
     Indication: PROPHYLAXIS
     Dates: start: 20051208, end: 20051216
  2. TRIAM [Concomitant]
  3. TRICOR [Concomitant]
  4. ECONOPRED PLUS [Concomitant]
  5. VIGAMOX [Concomitant]
  6. SYSTANE LUBRICANT EYE DROPS [Concomitant]

REACTIONS (2)
  - VISUAL ACUITY REDUCED [None]
  - VISUAL DISTURBANCE [None]
